FAERS Safety Report 10987911 (Version 2)
Quarter: 2015Q2

REPORT INFORMATION
  Report Type: Spontaneous
  Country: US (occurrence: US)
  Receive Date: 20150404
  Receipt Date: 20150525
  Transmission Date: 20150821
  Serious: No
  Sender: FDA-Public Use
  Company Number: US-JNJFOC-20130607103

PATIENT
  Age: 43 Year
  Sex: Male

DRUGS (1)
  1. REMICADE [Suspect]
     Active Substance: INFLIXIMAB
     Indication: COLITIS ULCERATIVE
     Dosage: THE PATIENT HAD STARTED THE INFLIXIMAB OVER 5 YEARS
     Route: 042

REACTIONS (4)
  - Chills [Unknown]
  - Anxiety [Unknown]
  - Tremor [Unknown]
  - Dizziness [Unknown]
